FAERS Safety Report 14351298 (Version 2)
Quarter: 2018Q2

REPORT INFORMATION
  Report Type: Spontaneous
  Country: AT (occurrence: AT)
  Receive Date: 20180104
  Receipt Date: 20180409
  Transmission Date: 20180711
  Serious: Yes (Other)
  Sender: FDA-Public Use
  Company Number: AT-SA-2017SA267080

PATIENT
  Age: 74 Year
  Sex: Male

DRUGS (6)
  1. OFEV [Suspect]
     Active Substance: NINTEDANIB
     Indication: MALIGNANT PLEURAL EFFUSION
     Dosage: 200 MG, 2X/DAY IN THE MORNINGS AND IN THE EVENINGS.
     Route: 065
  2. DOCETAXEL. [Suspect]
     Active Substance: DOCETAXEL
     Indication: MALIGNANT PLEURAL EFFUSION
     Route: 065
  3. DOCETAXEL. [Suspect]
     Active Substance: DOCETAXEL
     Indication: LUNG ADENOCARCINOMA STAGE IV
     Route: 065
  4. OFEV [Suspect]
     Active Substance: NINTEDANIB
     Indication: LUNG ADENOCARCINOMA STAGE IV
     Dosage: 1X/DAY IN THE EVENINGS
     Route: 065
  5. OFEV [Suspect]
     Active Substance: NINTEDANIB
     Indication: MALIGNANT PLEURAL EFFUSION
     Dosage: 1X/DAY IN THE EVENINGS
     Route: 065
  6. OFEV [Suspect]
     Active Substance: NINTEDANIB
     Indication: LUNG ADENOCARCINOMA STAGE IV
     Dosage: 200 MG, 2X/DAY IN THE MORNINGS AND IN THE EVENINGS.
     Route: 065

REACTIONS (7)
  - Nail disorder [Unknown]
  - Alopecia [Unknown]
  - Therapeutic response decreased [Unknown]
  - Asthenia [Unknown]
  - Drug intolerance [Unknown]
  - Chronic obstructive pulmonary disease [Unknown]
  - Condition aggravated [Unknown]

NARRATIVE: CASE EVENT DATE: 20170101
